FAERS Safety Report 7588078-8 (Version None)
Quarter: 2011Q3

REPORT INFORMATION
  Report Type: 
  Country: None (occurrence: None)
  Receive Date: 20110705
  Receipt Date: 20110629
  Transmission Date: 20111222
  Serious: No
  Sender: FDA-Public Use
  Company Number: US-PFIZER INC-2011146156

PATIENT
  Sex: Male
  Weight: 87.982 kg

DRUGS (9)
  1. LIPITOR [Suspect]
     Dosage: 80 MG HALF TABLET, DAILY
     Route: 048
     Dates: start: 20110101
  2. LIPITOR [Suspect]
     Indication: BLOOD CHOLESTEROL INCREASED
     Dosage: 40 MG, DAILY
     Route: 048
  3. NIASPAN [Concomitant]
     Indication: HIGH DENSITY LIPOPROTEIN
     Dosage: 1000 MG HALF TABLET, DAILY
     Route: 048
  4. METOPROLOL [Concomitant]
     Indication: BLOOD PRESSURE INCREASED
     Dosage: 25 MG, UNK
  5. LIPITOR [Suspect]
     Dosage: UNK
     Route: 048
  6. NEXIUM [Concomitant]
     Indication: GASTROOESOPHAGEAL REFLUX DISEASE
     Dosage: 20 MG, UNK
     Route: 048
  7. OMEPRAZOLE [Concomitant]
     Indication: GASTROOESOPHAGEAL REFLUX DISEASE
     Dosage: 20 MG, UNK
  8. ASPIRIN [Concomitant]
     Dosage: 81 MG, DAILY AT NIGHT
  9. ASPIRIN [Concomitant]
     Indication: FLUSHING
     Dosage: 325 MG, DAILY IN THE MORNING

REACTIONS (1)
  - DRUG LEVEL INCREASED [None]
